FAERS Safety Report 18433323 (Version 1)
Quarter: 2020Q4

REPORT INFORMATION
  Report Type: Report from Study
  Country: None (occurrence: US)
  Receive Date: 20201028
  Receipt Date: 20201028
  Transmission Date: 20210114
  Serious: Yes (Other)
  Sender: FDA-Public Use
  Company Number: US-ABBVIE-20K-163-3625438-00

PATIENT
  Sex: Female
  Weight: 67.19 kg

DRUGS (1)
  1. CREON [Suspect]
     Active Substance: PANCRELIPASE AMYLASE\PANCRELIPASE LIPASE\PANCRELIPASE PROTEASE
     Indication: PANCREATIC FAILURE
     Dosage: START DATE: LEAST 10 YEARS AGO
     Route: 048
     Dates: start: 2010

REACTIONS (1)
  - Breast cancer female [Not Recovered/Not Resolved]
